FAERS Safety Report 16781473 (Version 3)
Quarter: 2019Q4

REPORT INFORMATION
  Report Type: Report from Study
  Country: US (occurrence: US)
  Receive Date: 20190906
  Receipt Date: 20191016
  Transmission Date: 20200122
  Serious: Yes (Hospitalization)
  Sender: FDA-Public Use
  Company Number: US-TESARO-2019-TSO03090-US

PATIENT
  Sex: Female

DRUGS (2)
  1. NIRAPARIB [Suspect]
     Active Substance: NIRAPARIB
     Dosage: 200 MG, QD
     Route: 048
  2. NIRAPARIB [Suspect]
     Active Substance: NIRAPARIB
     Indication: OVARIAN CANCER
     Dosage: 200 MG, DAILY
     Route: 048
     Dates: start: 20190827, end: 20190901

REACTIONS (6)
  - Dehydration [Unknown]
  - Blood magnesium decreased [Unknown]
  - Feeling abnormal [Unknown]
  - Intentional product misuse [Unknown]
  - Vomiting [Not Recovered/Not Resolved]
  - Drug intolerance [Unknown]
